FAERS Safety Report 8485074-3 (Version None)
Quarter: 2012Q3

REPORT INFORMATION
  Report Type: 
  Country: None (occurrence: None)
  Receive Date: 20120703
  Receipt Date: 20120626
  Transmission Date: 20120928
  Serious: Yes (Hospitalization)
  Sender: FDA-Public Use
  Company Number: US-BAYER-2012-059920

PATIENT
  Age: 60 Year
  Sex: Male

DRUGS (1)
  1. NEXAVAR [Suspect]
     Indication: HEPATIC NEOPLASM MALIGNANT
     Dosage: DAILY DOSE 400 MG,
     Route: 048
     Dates: start: 20120608

REACTIONS (6)
  - ERYTHEMA [None]
  - PYREXIA [None]
  - OEDEMA PERIPHERAL [None]
  - ASTHENIA [None]
  - FALL [None]
  - CELLULITIS [None]
